FAERS Safety Report 10751620 (Version 1)
Quarter: 2015Q1

REPORT INFORMATION
  Report Type: Spontaneous
  Country: IN (occurrence: None)
  Receive Date: 20150128
  Receipt Date: 20150128
  Transmission Date: 20150721
  Serious: Yes (Other)
  Sender: FDA-Public Use
  Company Number: NSR_01776_2015

PATIENT
  Age: 55 Year
  Sex: Male

DRUGS (2)
  1. ATENOLOL (ATENOLOL) [Suspect]
     Active Substance: ATENOLOL
     Indication: SYSTOLIC HYPERTENSION
     Route: 048
  2. ATENOLOL (ATENOLOL) [Suspect]
     Active Substance: ATENOLOL
     Indication: DIASTOLIC HYPERTENSION
     Route: 048

REACTIONS (11)
  - Vomiting [None]
  - Bilirubin conjugated increased [None]
  - Ocular icterus [None]
  - Nausea [None]
  - Fatigue [None]
  - Transaminases increased [None]
  - Jaundice [None]
  - Decreased appetite [None]
  - Hepatotoxicity [None]
  - Abdominal discomfort [None]
  - Malaise [None]
